FAERS Safety Report 7498364-8 (Version None)
Quarter: 2011Q2

REPORT INFORMATION
  Report Type: 
  Country: None (occurrence: None)
  Receive Date: 20110524
  Receipt Date: 20110429
  Transmission Date: 20111010
  Serious: Yes (Hospitalization, Other)
  Sender: FDA-Public Use
  Company Number: US-BAYER-201030317NA

PATIENT
  Age: 28 Year
  Sex: Female
  Weight: 79.365 kg

DRUGS (5)
  1. YAZ [Suspect]
     Indication: ORAL CONTRACEPTION
     Dosage: UNK UNK, QD
     Route: 048
     Dates: start: 20070101, end: 20090901
  2. CELEXA [Concomitant]
  3. EFFEXOR [Concomitant]
     Dosage: 37.5 MG, UNK
     Route: 048
  4. YASMIN [Suspect]
     Indication: ORAL CONTRACEPTION
     Dosage: UNK UNK, QD
     Route: 048
     Dates: start: 20031028, end: 20070101
  5. SYNTHROID [Concomitant]
     Indication: HYPOTHYROIDISM
     Dosage: 137 MCG
     Route: 048

REACTIONS (8)
  - VOMITING [None]
  - CHOLELITHIASIS [None]
  - GALLBLADDER DISORDER [None]
  - ABDOMINAL PAIN UPPER [None]
  - CHILLS [None]
  - NAUSEA [None]
  - PYREXIA [None]
  - CHOLECYSTITIS ACUTE [None]
